FAERS Safety Report 6209702-8 (Version None)
Quarter: 2009Q2

REPORT INFORMATION
  Report Type: 
  Country: None (occurrence: None)
  Receive Date: 20090527
  Receipt Date: 20090518
  Transmission Date: 20091009
  Serious: Yes (Other)
  Sender: FDA-Public Use
  Company Number: 2007SP025152

PATIENT
  Age: 38 Year
  Sex: Female
  Weight: 62 kg

DRUGS (2)
  1. COPPERTONE LOTION SPF 30 (AVOBENZONE/HOMOSALATE/ OCTISALATE/OCTOCRYLEN [Suspect]
     Indication: DRUG USE FOR UNKNOWN INDICATION
     Dosage: ; QD; TOP
     Route: 061
  2. NATALINS FOLICO (MULTIVITAMIN AND MINERAL PREPARATION) [Concomitant]

REACTIONS (5)
  - CAESAREAN SECTION [None]
  - DRUG EXPOSURE DURING PREGNANCY [None]
  - EYE IRRITATION [None]
  - FEELING HOT [None]
  - INTRA-UTERINE DEATH [None]
